FAERS Safety Report 5189240-4 (Version None)
Quarter: 2006Q4

REPORT INFORMATION
  Report Type: 
  Country: None (occurrence: None)
  Receive Date: 20061215
  Receipt Date: 20061204
  Transmission Date: 20070319
  Serious: Yes (Hospitalization)
  Sender: FDA-Public Use
  Company Number: 2006AL003790

PATIENT
  Age: 46 Year
  Sex: Male

DRUGS (4)
  1. CARBAMAZEPINE [Suspect]
     Indication: DRUG WITHDRAWAL MAINTENANCE THERAPY
     Dosage: 1000 MG; QD;
  2. LORAZEPAM [Concomitant]
  3. PAROXETINE HCL [Concomitant]
  4. VENLAFAXINE HCL [Concomitant]

REACTIONS (8)
  - DRUG HYPERSENSITIVITY [None]
  - HALLUCINATION, AUDITORY [None]
  - HEPATIC TRAUMA [None]
  - HEPATOTOXICITY [None]
  - MAJOR DEPRESSION [None]
  - PNEUMONIA [None]
  - RASH [None]
  - SOCIAL PHOBIA [None]
